FAERS Safety Report 4521191-8 (Version None)
Quarter: 2004Q4

REPORT INFORMATION
  Report Type: 
  Country: None (occurrence: None)
  Receive Date: 20041203
  Receipt Date: 20041118
  Transmission Date: 20050328
  Serious: No
  Sender: FDA-Public Use
  Company Number: 2004GB02337

PATIENT
  Age: 65 Year
  Sex: Male
  Weight: 85 kg

DRUGS (15)
  1. IRESSA [Suspect]
     Indication: PROSTATE CANCER
     Dosage: 250 MG DAILY; PO
     Route: 048
     Dates: start: 20040512, end: 20040929
  2. IRESSA [Suspect]
     Indication: PROSTATE CANCER
     Dosage: 250 MG DAILY; PO
     Route: 048
     Dates: start: 20041007
  3. DIFENE [Suspect]
     Dates: start: 20040924, end: 20040924
  4. TYLEX [Suspect]
     Dates: start: 20040924, end: 20040924
  5. TAMSULOSIN [Concomitant]
  6. ATORVASTATIN [Concomitant]
  7. DOTHIEPIN HYDROCHLORIDE [Concomitant]
  8. ISOSORBIDE MONONITRATE [Concomitant]
  9. SALMETEROL/FLUTICASONE [Concomitant]
  10. TERBUTALINE [Concomitant]
  11. ASPIRIN [Concomitant]
  12. ALPRAZOLAM [Concomitant]
  13. NO MATCH [Concomitant]
  14. ZOLADEX [Concomitant]
  15. CASODEX [Concomitant]

REACTIONS (4)
  - DRUG INTERACTION [None]
  - DYSPNOEA [None]
  - FALL [None]
  - FATIGUE [None]
